FAERS Safety Report 21619645 (Version 2)
Quarter: 2022Q4

REPORT INFORMATION
  Report Type: Spontaneous
  Country: US (occurrence: US)
  Receive Date: 20221121
  Receipt Date: 20221214
  Transmission Date: 20230113
  Serious: No
  Sender: FDA-Public Use
  Company Number: US-JNJFOC-20221140676

PATIENT
  Age: 66 Year
  Sex: Female
  Weight: 63.061 kg

DRUGS (3)
  1. OPSUMIT [Suspect]
     Active Substance: MACITENTAN
     Indication: Product used for unknown indication
     Route: 048
     Dates: end: 2022
  2. TYVASO [Suspect]
     Active Substance: TREPROSTINIL
     Indication: Pulmonary arterial hypertension
     Dosage: 0.6MG/ML 8 BREATHS,  INHALATION (IH) ROUTE.
     Route: 065
     Dates: start: 20220621
  3. ADEMPAS [Suspect]
     Active Substance: RIOCIGUAT
     Indication: Product used for unknown indication
     Route: 065
     Dates: start: 202210

REACTIONS (3)
  - Adverse drug reaction [Unknown]
  - Arthralgia [Unknown]
  - Cough [Unknown]
